FAERS Safety Report 9954930 (Version 2)
Quarter: 2014Q1

REPORT INFORMATION
  Report Type: Spontaneous
  Country: PR (occurrence: PR)
  Receive Date: 20140304
  Receipt Date: 20140304
  Transmission Date: 20141002
  Serious: No
  Sender: FDA-Public Use
  Company Number: PR-ABBVIE-12P-131-1024198-00

PATIENT
  Age: 32 Year
  Sex: Male
  Weight: 62.2 kg

DRUGS (3)
  1. HUMIRA [Suspect]
     Indication: CROHN^S DISEASE
     Route: 058
     Dates: start: 2012, end: 201212
  2. HUMIRA [Suspect]
     Route: 058
     Dates: start: 201301, end: 201303
  3. HUMIRA [Suspect]

REACTIONS (4)
  - Malaise [Unknown]
  - Injection site swelling [Recovered/Resolved]
  - Injection site erythema [Recovered/Resolved]
  - Nasopharyngitis [Recovered/Resolved]
